FAERS Safety Report 22644204 (Version 1)
Quarter: 2023Q2

REPORT INFORMATION
  Report Type: Report from Study
  Country: US (occurrence: US)
  Receive Date: 20230627
  Receipt Date: 20230627
  Transmission Date: 20230721
  Serious: Yes (Other)
  Sender: FDA-Public Use
  Company Number: US-ABBVIE-5281807

PATIENT
  Sex: Male

DRUGS (3)
  1. DALVANCE [Suspect]
     Active Substance: DALBAVANCIN
     Indication: Osteomyelitis
     Dosage: TIME INTERVAL: AS NECESSARY
     Route: 042
     Dates: start: 20230605, end: 20230605
  2. DALVANCE [Suspect]
     Active Substance: DALBAVANCIN
     Indication: Osteomyelitis
     Route: 042
     Dates: start: 202303, end: 202303
  3. DALVANCE [Suspect]
     Active Substance: DALBAVANCIN
     Indication: Osteomyelitis
     Dosage: TIME INTERVAL: AS NECESSARY
     Route: 042
     Dates: start: 202303, end: 202303

REACTIONS (6)
  - Wound [Unknown]
  - Off label use [Unknown]
  - Dry skin [Unknown]
  - Wound [Unknown]
  - Wound complication [Unknown]
  - Erythema [Unknown]
